FAERS Safety Report 9188268 (Version 1)
Quarter: 2013Q1

REPORT INFORMATION
  Report Type: Report from Study
  Country: IT (occurrence: IT)
  Receive Date: 20130325
  Receipt Date: 20130325
  Transmission Date: 20140127
  Serious: Yes (Death)
  Sender: FDA-Public Use
  Company Number: IT-ASTELLAS-2013EU002776

PATIENT
  Age: 77 Year
  Sex: Male

DRUGS (1)
  1. MICAFUNGIN INJECTION [Suspect]
     Indication: SYSTEMIC MYCOSIS
     Dosage: 100 MG, UNKNOWN/D
     Route: 065

REACTIONS (1)
  - Cardiogenic shock [Fatal]
